FAERS Safety Report 23473677 (Version 2)
Quarter: 2024Q1

REPORT INFORMATION
  Report Type: Spontaneous
  Country: BR (occurrence: BR)
  Receive Date: 20240203
  Receipt Date: 20240214
  Transmission Date: 20240410
  Serious: Yes (Other)
  Sender: FDA-Public Use
  Company Number: BR-Accord-404902

PATIENT
  Age: 64 Year
  Sex: Female
  Weight: 70 kg

DRUGS (15)
  1. PACLITAXEL [Suspect]
     Active Substance: PACLITAXEL
     Indication: Invasive ductal breast carcinoma
     Dosage: 139.2 MG PER CYCLE OF CHEMOTHERAPY
     Route: 042
     Dates: start: 20230918
  2. DEXAMETHASONE [Concomitant]
     Active Substance: DEXAMETHASONE
     Indication: Chemotherapy side effect prophylaxis
     Dosage: 8 MG PER CYCLE OF CHEMOTHERAPY
     Route: 042
     Dates: start: 20230918, end: 20230918
  3. DIPHENHYDRAMINE [Concomitant]
     Active Substance: DIPHENHYDRAMINE
     Indication: Chemotherapy side effect prophylaxis
     Dosage: 25 MG PER CYCLE OF CHEMOTHERAPY
     Route: 042
     Dates: start: 20230918, end: 20230918
  4. ONDANSETRON [Concomitant]
     Active Substance: ONDANSETRON
     Indication: Chemotherapy side effect prophylaxis
     Dosage: 8 MG PER CYCLE OF CHEMOTHERAPY
     Route: 042
     Dates: start: 20230918, end: 20230918
  5. DEXAMETHASONE [Concomitant]
     Active Substance: DEXAMETHASONE
     Indication: Chemotherapy side effect prophylaxis
     Dosage: 4 MG - 1 TABLET THE NIGHT BEFORE CHEMOTHERAPY AND 1 TABLET THE MORNING OF CHEMOTHERAPY
     Route: 048
     Dates: start: 20230917, end: 20230918
  6. BROMOPRIDE [Concomitant]
     Active Substance: BROMOPRIDE
     Indication: Antiemetic supportive care
     Dosage: 10 MG - 1 TABLET EVERY 8 HOURS
     Route: 048
     Dates: start: 20230915, end: 20231015
  7. LACTULOSE [Concomitant]
     Active Substance: LACTULOSE
     Indication: Laxative supportive care
     Dosage: 667 MG/ML - 15 ML IN THE MORNING
     Route: 048
     Dates: start: 20230915, end: 20231015
  8. OMEPRAZOLE [Concomitant]
     Active Substance: OMEPRAZOLE
     Indication: Prophylaxis against gastrointestinal ulcer
     Dosage: 20 MG - 1 CAPSULE
     Route: 048
     Dates: start: 20230915, end: 20231015
  9. TRAMADOL [Concomitant]
     Active Substance: TRAMADOL\TRAMADOL HYDROCHLORIDE
     Indication: Analgesic therapy
     Dosage: 50 MG - 1 TABLET EVERY 6 HOURS
     Route: 048
     Dates: start: 20230915, end: 20231015
  10. METAMIZOLE SODIUM [Concomitant]
     Active Substance: METAMIZOLE SODIUM
     Indication: Analgesic therapy
     Dosage: 40 DROPS EVERY 6 HOURS
     Route: 048
     Dates: start: 20230915, end: 20231015
  11. PACLITAXEL [Suspect]
     Active Substance: PACLITAXEL
     Indication: Invasive ductal breast carcinoma
     Dosage: 139.2 MG PER CYCLE OF CHEMOTHERAPY
     Route: 042
     Dates: start: 20230927
  12. DEXAMETHASONE [Concomitant]
     Active Substance: DEXAMETHASONE
     Indication: Chemotherapy side effect prophylaxis
     Dosage: 8 MG PER CYCLE OF CHEMOTHERAPY
     Route: 042
     Dates: start: 20230927, end: 20230927
  13. DIPHENHYDRAMINE [Concomitant]
     Active Substance: DIPHENHYDRAMINE
     Indication: Chemotherapy side effect prophylaxis
     Dosage: 25 MG PER CYCLE OF CHEMOTHERAPY
     Route: 042
     Dates: start: 20230927, end: 20230927
  14. ONDANSETRON [Concomitant]
     Active Substance: ONDANSETRON
     Indication: Chemotherapy side effect prophylaxis
     Dosage: 8 MG PER CYCLE OF CHEMOTHERAPY
     Route: 042
     Dates: start: 20230927, end: 20230927
  15. DEXAMETHASONE [Concomitant]
     Active Substance: DEXAMETHASONE
     Indication: Chemotherapy side effect prophylaxis
     Dosage: 4 MG - 1 TABLET THE NIGHT BEFORE CHEMOTHERAPY AND 1 TABLET THE MORNING OF CHEMOTHERAPY
     Route: 048
     Dates: start: 20230926, end: 20230927

REACTIONS (3)
  - Back pain [Recovered/Resolved]
  - Chest discomfort [Recovered/Resolved]
  - Flushing [Recovered/Resolved]

NARRATIVE: CASE EVENT DATE: 20230918
